FAERS Safety Report 5870474-8 (Version None)
Quarter: 2008Q3

REPORT INFORMATION
  Report Type: 
  Country: None (occurrence: None)
  Receive Date: 20080904
  Receipt Date: 20080115
  Transmission Date: 20090109
  Serious: No
  Sender: FDA-Public Use
  Company Number: US-BRISTOL-MYERS SQUIBB COMPANY-14041024

PATIENT
  Age: 54 Year
  Sex: Male
  Weight: 185 kg

DRUGS (2)
  1. DEFINITY [Suspect]
     Route: 040
     Dates: start: 20080115, end: 20080115
  2. TOPROL-XL [Concomitant]

REACTIONS (1)
  - HEADACHE [None]
